FAERS Safety Report 6249696-2 (Version None)
Quarter: 2009Q2

REPORT INFORMATION
  Report Type: 
  Country: None (occurrence: None)
  Receive Date: 20090629
  Receipt Date: 20090616
  Transmission Date: 20091009
  Serious: Yes (Other)
  Sender: FDA-Public Use
  Company Number: GB-MYLANLABS-2007S1012355

PATIENT
  Age: 52 Year
  Sex: Female

DRUGS (1)
  1. TAMOXIFEN CITRATE [Suspect]
     Indication: BREAST CANCER
     Dates: start: 19961201

REACTIONS (3)
  - BIOPSY CHORIONIC VILLOUS ABNORMAL [None]
  - BIOPSY ENDOMETRIUM ABNORMAL [None]
  - POSTMENOPAUSAL HAEMORRHAGE [None]
